FAERS Safety Report 6842500-0 (Version None)
Quarter: 2010Q3

REPORT INFORMATION
  Report Type: 
  Country: None (occurrence: None)
  Receive Date: 20100714
  Receipt Date: 20071003
  Transmission Date: 20110219
  Serious: No
  Sender: FDA-Public Use
  Company Number: US-PFIZER INC-2007062440

PATIENT
  Sex: Female
  Weight: 77.1 kg

DRUGS (9)
  1. CHANTIX [Suspect]
     Indication: SMOKING CESSATION THERAPY
     Dates: start: 20070713
  2. HYDROXYCHLOROQUINE [Concomitant]
  3. QUINAPRIL [Concomitant]
  4. PREDNISONE TAB [Concomitant]
  5. METOPROLOL [Concomitant]
  6. PROTONIX [Concomitant]
  7. LEFLUNOMIDE [Concomitant]
  8. FOLIC ACID [Concomitant]
  9. OXYCODONE HCL [Concomitant]

REACTIONS (3)
  - DYSGEUSIA [None]
  - JOINT SWELLING [None]
  - NAUSEA [None]
